FAERS Safety Report 5099734-8 (Version None)
Quarter: 2006Q3

REPORT INFORMATION
  Report Type: 
  Country: None (occurrence: None)
  Receive Date: 20060908
  Receipt Date: 20060830
  Transmission Date: 20061208
  Serious: Yes (Hospitalization)
  Sender: FDA-Public Use
  Company Number: JP-JPN-A200603277

PATIENT
  Age: 83 Year
  Sex: Male

DRUGS (6)
  1. VALTREX [Suspect]
     Indication: HERPES ZOSTER
     Dosage: 500MG PER DAY
     Route: 048
     Dates: start: 20060817, end: 20060818
  2. PRECIPITATED CALCIUM CARBONATE [Concomitant]
     Dosage: 1.5G THREE TIMES PER DAY
     Route: 048
  3. LASIX [Concomitant]
     Dosage: 40MG PER DAY
     Route: 048
  4. ALFAROL [Concomitant]
     Dosage: .25MCG PER DAY
     Route: 048
  5. PROTECADIN [Concomitant]
     Dosage: 10MG PER DAY
     Route: 048
  6. PANALDINE [Concomitant]
     Dosage: 200MG PER DAY
     Route: 048

REACTIONS (2)
  - ANOREXIA [None]
  - DEPRESSED LEVEL OF CONSCIOUSNESS [None]
